FAERS Safety Report 16216070 (Version 1)
Quarter: 2019Q2

REPORT INFORMATION
  Report Type: Spontaneous
  Country: US (occurrence: US)
  Receive Date: 20190315
  Receipt Date: 20190315
  Transmission Date: 20190711
  Serious: Yes (Death)
  Sender: FDA-Public Use
  Company Number: None

PATIENT
  Age: 72 Year
  Sex: Male

DRUGS (2)
  1. WARFARIN [Suspect]
     Active Substance: WARFARIN
     Indication: ATRIAL FIBRILLATION
     Dates: start: 20151211, end: 20190210
  2. WARFARIN [Suspect]
     Active Substance: WARFARIN
     Indication: ANTICOAGULANT THERAPY
     Dates: start: 20151211, end: 20190210

REACTIONS (4)
  - Tinnitus [None]
  - Inner ear disorder [None]
  - Haemorrhage intracranial [None]
  - Headache [None]

NARRATIVE: CASE EVENT DATE: 20190210
